FAERS Safety Report 5978468-9 (Version None)
Quarter: 2008Q4

REPORT INFORMATION
  Report Type: 
  Country: None (occurrence: None)
  Receive Date: 20081125
  Receipt Date: 20081118
  Transmission Date: 20090506
  Serious: Yes (Death, Life-Threatening)
  Sender: FDA-Public Use
  Company Number: 1000001319

PATIENT
  Age: 40 Year
  Sex: Female

DRUGS (4)
  1. DINOPROSTONE (DINOPROSTONE) [Suspect]
     Indication: LABOUR INDUCTION
     Dosage: 10 MG (10 MG, 1 IN 1 ONCE), VAGINAL
     Route: 067
     Dates: start: 20070227, end: 20070227
  2. DINOPROSTONE (DINOPROSTONE) [Suspect]
     Indication: UTERINE CERVIX DILATION PROCEDURE
     Dosage: 10 MG (10 MG, 1 IN 1 ONCE), VAGINAL
     Route: 067
     Dates: start: 20070227, end: 20070227
  3. IRON [Concomitant]
  4. VITAMINS [Concomitant]

REACTIONS (8)
  - CARDIAC ARREST [None]
  - DISSEMINATED INTRAVASCULAR COAGULATION [None]
  - DYSPNOEA [None]
  - LOSS OF CONSCIOUSNESS [None]
  - POSTPARTUM HAEMORRHAGE [None]
  - TREATMENT FAILURE [None]
  - UTERINE ATONY [None]
  - VENTRICULAR TACHYCARDIA [None]
